FAERS Safety Report 8318110 (Version 3)
Quarter: 2012Q4

REPORT INFORMATION
  Report Type: Report from Study
  Country: US (occurrence: US)
  Receive Date: 20120103
  Receipt Date: 20121031
  Transmission Date: 20130627
  Serious: No
  Sender: FDA-Public Use
  Company Number: US-JNJFOC-20111209105

PATIENT
  Sex: Female

DRUGS (2)
  1. REMICADE [Suspect]
     Indication: INFLAMMATORY BOWEL DISEASE
     Route: 042
     Dates: start: 20050121, end: 20050218
  2. ADALIMUMAB [Suspect]
     Indication: INFLAMMATORY BOWEL DISEASE
     Dates: start: 20071023, end: 20091014

REACTIONS (1)
  - Psoriasis [Unknown]
